FAERS Safety Report 21866839 (Version 1)
Quarter: 2023Q1

REPORT INFORMATION
  Report Type: Spontaneous
  Country: CO (occurrence: CO)
  Receive Date: 20230116
  Receipt Date: 20230116
  Transmission Date: 20230417
  Serious: Yes (Hospitalization)
  Sender: FDA-Public Use
  Company Number: CO-PFIZER INC-PV202300007396

PATIENT
  Age: 54 Year
  Sex: Female
  Weight: 46 kg

DRUGS (2)
  1. PALBOCICLIB [Suspect]
     Active Substance: PALBOCICLIB
     Indication: Breast cancer
     Dosage: 125 MG
     Route: 048
     Dates: start: 2018
  2. PALBOCICLIB [Suspect]
     Active Substance: PALBOCICLIB
     Indication: Metastases to peritoneum

REACTIONS (3)
  - Nephrostomy [Unknown]
  - Weight decreased [Unknown]
  - Neoplasm progression [Unknown]

NARRATIVE: CASE EVENT DATE: 20221201
